FAERS Safety Report 25776840 (Version 1)
Quarter: 2025Q3

REPORT INFORMATION
  Report Type: Spontaneous
  Country: US (occurrence: US)
  Receive Date: 20250909
  Receipt Date: 20250909
  Transmission Date: 20251021
  Serious: No
  Sender: DOMPE FARMACEUTICI
  Company Number: US-FARMAPROD-202503-0991

PATIENT
  Sex: Male

DRUGS (10)
  1. OXERVATE [Suspect]
     Active Substance: CENEGERMIN-BKBJ
     Indication: Neurotrophic keratopathy
     Route: 047
     Dates: start: 20250318
  2. BLINK TEARS [Concomitant]
     Active Substance: POLYETHYLENE GLYCOL 400
  3. SIMETHICONE (DIMETHICONE) [Concomitant]
     Active Substance: DIMETHICONE
  4. FEXOFENADINE HYDROCHLORIDE [Concomitant]
     Active Substance: FEXOFENADINE HYDROCHLORIDE
  5. FAMOTIDINE [Concomitant]
     Active Substance: FAMOTIDINE
  6. IBUPROFEN [Concomitant]
     Active Substance: IBUPROFEN
  7. FLUTICASONE PROPIONATE [Concomitant]
     Active Substance: FLUTICASONE PROPIONATE
  8. MELOXICAM [Concomitant]
     Active Substance: MELOXICAM
  9. TRAZODONE HCL [Concomitant]
     Active Substance: TRAZODONE HYDROCHLORIDE
  10. CEQUA [Concomitant]
     Active Substance: CYCLOSPORINE

REACTIONS (2)
  - Photophobia [Unknown]
  - Eye irritation [Unknown]
